FAERS Safety Report 7960412-6 (Version None)
Quarter: 2011Q4

REPORT INFORMATION
  Report Type: 
  Country: None (occurrence: None)
  Receive Date: 20111201
  Receipt Date: 20110407
  Transmission Date: 20120403
  Serious: Yes (Hospitalization, Other)
  Sender: FDA-Public Use
  Company Number: 2523595-2011-00013

PATIENT
  Age: 61 Year
  Sex: Male

DRUGS (1)
  1. UVADEX [Suspect]
     Indication: GRAFT VERSUS HOST DISEASE
     Dosage: PER ECP TREATMENT-8 TMTS
     Dates: start: 20110324

REACTIONS (4)
  - AGITATION [None]
  - DYSKINESIA [None]
  - PNEUMONIA [None]
  - RESPIRATORY DISTRESS [None]
